FAERS Safety Report 17440519 (Version 2)
Quarter: 2020Q1

REPORT INFORMATION
  Report Type: Spontaneous
  Country: US (occurrence: US)
  Receive Date: 20200220
  Receipt Date: 20200310
  Transmission Date: 20200409
  Serious: No
  Sender: FDA-Public Use
  Company Number: US-CELGENEUS-USA-20200203180

PATIENT
  Age: 70 Year
  Sex: Male

DRUGS (3)
  1. OTEZLA [Suspect]
     Active Substance: APREMILAST
     Dosage: 60 MILLIGRAM
     Route: 048
     Dates: start: 202002, end: 20200215
  2. OTEZLA [Suspect]
     Active Substance: APREMILAST
     Dosage: TOOK 30MG TWICE DAILY AND 10 MG DAILY
     Route: 048
     Dates: start: 202002
  3. OTEZLA [Suspect]
     Active Substance: APREMILAST
     Indication: PSORIASIS
     Dosage: STARTER PACK/TITRATION PACK (10/20/20MG)
     Route: 048
     Dates: start: 20200208

REACTIONS (5)
  - Depression [Recovering/Resolving]
  - Diarrhoea [Recovered/Resolved]
  - Anxiety [Recovered/Resolved]
  - Fatigue [Recovering/Resolving]
  - Product administration error [Unknown]

NARRATIVE: CASE EVENT DATE: 20200207
